FAERS Safety Report 15204895 (Version 5)
Quarter: 2019Q3

REPORT INFORMATION
  Report Type: Spontaneous
  Country: PL (occurrence: PL)
  Receive Date: 20180726
  Receipt Date: 20190822
  Transmission Date: 20191004
  Serious: Yes (Other)
  Sender: FDA-Public Use
  Company Number: PL-TAKEDA-2018TEU004313

PATIENT
  Age: 65 Year
  Sex: Female

DRUGS (43)
  1. CANDESARTAN, HYDROCHLOROTHIAZIDE [Interacting]
     Active Substance: CANDESARTAN CILEXETIL\HYDROCHLOROTHIAZIDE
     Indication: ARRHYTHMIA
  2. AMLODIPINE [Interacting]
     Active Substance: AMLODIPINE BESYLATE
     Indication: ATRIAL FIBRILLATION
  3. ACETYLSALICYLIC ACID [Interacting]
     Active Substance: ASPIRIN
     Indication: ATRIAL FIBRILLATION
  4. ACETYLSALICYLIC ACID [Interacting]
     Active Substance: ASPIRIN
     Indication: HYPERTENSION
  5. PROPAFENONE. [Interacting]
     Active Substance: PROPAFENONE
     Indication: HYPERLIPIDAEMIA
  6. AMITRIPTYLINE [Interacting]
     Active Substance: AMITRIPTYLINE
     Indication: DEPRESSION
     Dosage: 225 MILLIGRAM, QD
     Route: 065
  7. ACETYLSALICYLIC ACID [Interacting]
     Active Substance: ASPIRIN
     Indication: HYPERLIPIDAEMIA
     Dosage: 75 MILLIGRAM, QD
     Route: 048
  8. ENALAPRIL + HIDROCLOROTIAZIDA [Interacting]
     Active Substance: ENALAPRIL MALEATE\HYDROCHLOROTHIAZIDE
     Indication: HYPERTENSION
     Dosage: 12.5 MILLIGRAM, QD
     Route: 065
  9. ATORVASTATIN CALCIUM. [Interacting]
     Active Substance: ATORVASTATIN CALCIUM
     Indication: HYPERLIPIDAEMIA
  10. CANDESARTAN, HYDROCHLOROTHIAZIDE [Interacting]
     Active Substance: CANDESARTAN CILEXETIL\HYDROCHLOROTHIAZIDE
     Indication: HYPERTENSION
     Dosage: 16/12.5 MILLIGRAM, QD
     Route: 048
  11. PROPAFENONE. [Interacting]
     Active Substance: PROPAFENONE
     Indication: ATRIAL FIBRILLATION
  12. AMITRIPTYLINE [Interacting]
     Active Substance: AMITRIPTYLINE
     Dosage: 25 MILLIGRAM, QD
     Route: 065
  13. ACETYLSALICYLIC ACID [Interacting]
     Active Substance: ASPIRIN
     Indication: ARRHYTHMIA SUPRAVENTRICULAR
  14. ENALAPRIL + HIDROCLOROTIAZIDA [Interacting]
     Active Substance: ENALAPRIL MALEATE\HYDROCHLOROTHIAZIDE
     Indication: ARRHYTHMIA SUPRAVENTRICULAR
     Dosage: 16 MILLIGRAM, QD
     Route: 065
  15. PROPAFENONE. [Interacting]
     Active Substance: PROPAFENONE
     Indication: ARRHYTHMIA SUPRAVENTRICULAR
     Dosage: 450 MILLIGRAM, QD
     Route: 048
  16. PROPAFENONE. [Interacting]
     Active Substance: PROPAFENONE
     Indication: ARRHYTHMIA
  17. SULPIRIDE [Interacting]
     Active Substance: SULPIRIDE
     Indication: DEPRESSION
     Dosage: 150 MILLIGRAM, QD
     Route: 065
  18. LANSOPRAZOLE. [Interacting]
     Active Substance: LANSOPRAZOLE
     Indication: ARRHYTHMIA SUPRAVENTRICULAR
  19. ENALAPRIL + HIDROCLOROTIAZIDA [Interacting]
     Active Substance: ENALAPRIL MALEATE\HYDROCHLOROTHIAZIDE
     Indication: HYPERLIPIDAEMIA
     Dosage: 16 MILLIGRAM, QD
     Route: 065
  20. LAMOTRIGINE A [Interacting]
     Active Substance: LAMOTRIGINE
     Indication: DEPRESSION
     Dosage: 150 MILLIGRAM, QD
     Route: 048
  21. ATORVASTATIN CALCIUM. [Interacting]
     Active Substance: ATORVASTATIN CALCIUM
     Indication: HYPERTENSION
     Dosage: 20 MILLIGRAM, QD
     Route: 048
  22. SULPIRIDE ADAMANTANECARBOXYLATE [Interacting]
     Active Substance: SULPIRIDE ADAMANTANECARBOXYLATE
     Dosage: 10 MILLIGRAM, QD
     Route: 065
  23. PERAZINE [Interacting]
     Active Substance: PERAZINE
     Indication: DEPRESSION
     Dosage: 75 MILLIGRAM, QD
     Route: 048
  24. LANSOPRAZOLE. [Interacting]
     Active Substance: LANSOPRAZOLE
     Indication: HYPERTENSION
  25. CANDESARTAN, HYDROCHLOROTHIAZIDE [Interacting]
     Active Substance: CANDESARTAN CILEXETIL\HYDROCHLOROTHIAZIDE
     Indication: ATRIAL FIBRILLATION
  26. AMLODIPINE [Interacting]
     Active Substance: AMLODIPINE BESYLATE
     Indication: HYPERTENSION
  27. AMLODIPINE [Interacting]
     Active Substance: AMLODIPINE BESYLATE
     Indication: ARRHYTHMIA
  28. ACETYLSALICYLIC ACID [Interacting]
     Active Substance: ASPIRIN
     Indication: ARRHYTHMIA
  29. ACETYLSALICYLIC ACID [Interacting]
     Active Substance: ASPIRIN
     Indication: HYPOTENSION
  30. LEVOMEPROMAZINE [Interacting]
     Active Substance: LEVOMEPROMAZINE
     Indication: DEPRESSION
     Dosage: 50 MILLIGRAM, QD
     Route: 065
  31. PROPAFENONE. [Interacting]
     Active Substance: PROPAFENONE
     Indication: HYPERTENSION
     Dosage: 150 MILLIGRAM, QD
     Route: 065
  32. SULPIRIDE ADAMANTANECARBOXYLATE [Interacting]
     Active Substance: SULPIRIDE ADAMANTANECARBOXYLATE
     Indication: DEPRESSION
     Dosage: 150 MILLIGRAM, QD
     Route: 065
  33. SERTRALINE HCL [Interacting]
     Active Substance: SERTRALINE HYDROCHLORIDE
     Indication: DEPRESSION
     Dosage: 100 MILLIGRAM, QD
     Route: 048
  34. VINPOCETINE [Interacting]
     Active Substance: VINPOCETINE
     Indication: DEPRESSION
     Dosage: 15 MILLIGRAM, QD
     Route: 065
  35. LANSOPRAZOLE. [Suspect]
     Active Substance: LANSOPRAZOLE
     Indication: HYPERLIPIDAEMIA
     Dosage: 15 MILLIGRAM, QD
     Route: 048
  36. AMLODIPINE [Interacting]
     Active Substance: AMLODIPINE BESYLATE
     Indication: ARRHYTHMIA SUPRAVENTRICULAR
     Dosage: 5 MILLIGRAM, QD
     Route: 048
  37. ATORVASTATIN CALCIUM. [Interacting]
     Active Substance: ATORVASTATIN CALCIUM
     Indication: ARRHYTHMIA SUPRAVENTRICULAR
  38. SULPIRIDE ADAMANTANECARBOXYLATE [Interacting]
     Active Substance: SULPIRIDE ADAMANTANECARBOXYLATE
     Dosage: 50 MILLIGRAM, QD
     Route: 065
  39. AMLODIPINE [Interacting]
     Active Substance: AMLODIPINE BESYLATE
     Indication: HYPERLIPIDAEMIA
  40. BUSPIRONE [Interacting]
     Active Substance: BUSPIRONE HYDROCHLORIDE
     Indication: DEPRESSION
     Dosage: 10 MILLIGRAM, QD
     Route: 065
  41. SERTRALINE HCL [Interacting]
     Active Substance: SERTRALINE HYDROCHLORIDE
     Dosage: UNK
     Route: 048
  42. SULPIRIDE [Interacting]
     Active Substance: SULPIRIDE
     Dosage: 50 MILLIGRAM, QD
     Route: 065
  43. SULPIRIDE [Interacting]
     Active Substance: SULPIRIDE
     Dosage: 10 MILLIGRAM, QD
     Route: 065

REACTIONS (30)
  - Nervous system disorder [Recovered/Resolved]
  - Insomnia [Recovering/Resolving]
  - Tension [Recovering/Resolving]
  - Sleep deficit [Recovered/Resolved]
  - Sleep disorder [Recovering/Resolving]
  - Mental disorder [Recovering/Resolving]
  - Drug ineffective [Recovering/Resolving]
  - Anhedonia [Recovering/Resolving]
  - Fall [Recovering/Resolving]
  - Extrapyramidal disorder [Recovered/Resolved]
  - Emotional disorder [Recovering/Resolving]
  - Balance disorder [Recovered/Resolved]
  - Drug interaction [Recovering/Resolving]
  - Fatigue [Recovering/Resolving]
  - Anxiety [Recovered/Resolved]
  - Overweight [Unknown]
  - Depressed mood [Recovering/Resolving]
  - Somnolence [Recovered/Resolved]
  - Somnolence [Recovering/Resolving]
  - Dizziness [Recovered/Resolved]
  - Amnesia [Recovering/Resolving]
  - Fall [Recovered/Resolved]
  - Anxiety [Unknown]
  - Disturbance in attention [Recovering/Resolving]
  - Bradykinesia [Recovered/Resolved]
  - Emotional poverty [Recovering/Resolving]
  - Cognitive disorder [Recovered/Resolved]
  - Psychomotor retardation [Recovering/Resolving]
  - Depression [Recovering/Resolving]
  - Flat affect [Recovering/Resolving]
